FAERS Safety Report 23609260 (Version 2)
Quarter: 2024Q1

REPORT INFORMATION
  Report Type: Spontaneous
  Country: JP (occurrence: None)
  Receive Date: 20240308
  Receipt Date: 20240322
  Transmission Date: 20240409
  Serious: No
  Sender: FDA-Public Use
  Company Number: JP-Orion Corporation ORION PHARMA-ENTC2024-0025

PATIENT
  Age: 82 Year
  Sex: Female

DRUGS (1)
  1. STALEVO [Suspect]
     Active Substance: CARBIDOPA\ENTACAPONE\LEVODOPA
     Indication: Parkinson^s disease

REACTIONS (1)
  - Wrong technique in product usage process [Unknown]
